FAERS Safety Report 6594900-4 (Version None)
Quarter: 2010Q1

REPORT INFORMATION
  Report Type: 
  Country: None (occurrence: None)
  Receive Date: 20100222
  Receipt Date: 20100212
  Transmission Date: 20100710
  Serious: Yes (Other)
  Sender: FDA-Public Use
  Company Number: GB-PFIZER INC-2010018709

PATIENT
  Age: 49 Year
  Sex: Male
  Weight: 76 kg

DRUGS (3)
  1. CHAMPIX [Suspect]
     Indication: SMOKING CESSATION THERAPY
     Dosage: UNK
     Route: 048
     Dates: start: 20091014, end: 20091027
  2. MIRTAZAPINE [Concomitant]
     Indication: DEPRESSION
     Dosage: 30 MG, UNK
     Dates: start: 20090101
  3. PROPRANOLOL [Concomitant]
     Dosage: 80 UNK, UNK
     Route: 048
     Dates: start: 20040101

REACTIONS (2)
  - DEPRESSED MOOD [None]
  - DEREALISATION [None]
